FAERS Safety Report 7712716-X (Version None)
Quarter: 2011Q3

REPORT INFORMATION
  Report Type: 
  Country: None (occurrence: None)
  Receive Date: 20110826
  Receipt Date: 20110812
  Transmission Date: 20111222
  Serious: Yes (Hospitalization)
  Sender: FDA-Public Use
  Company Number: US-GLAXOSMITHKLINE-A0834654A

PATIENT
  Age: 55 Year
  Sex: Male

DRUGS (8)
  1. AVANDIA [Suspect]
     Indication: DIABETES MELLITUS
     Dosage: 4MG PER DAY
     Route: 048
     Dates: start: 19990501
  2. CRESTOR [Concomitant]
  3. INSULIN [Concomitant]
  4. AVANDARYL [Suspect]
     Indication: DIABETES MELLITUS
     Route: 048
  5. ATENOLOL [Concomitant]
  6. NORVASC [Concomitant]
  7. SYNTHROID [Concomitant]
  8. HYDROCHLOROTHIAZIDE [Concomitant]

REACTIONS (2)
  - ARTERY DISSECTION [None]
  - CEREBROVASCULAR ACCIDENT [None]
